FAERS Safety Report 7046986-0 (Version None)
Quarter: 2010Q4

REPORT INFORMATION
  Report Type: 
  Country: None (occurrence: None)
  Receive Date: 20101015
  Receipt Date: 20101007
  Transmission Date: 20110411
  Serious: Yes (Hospitalization)
  Sender: FDA-Public Use
  Company Number: GR-ABBOTT-10P-066-0671818-00

PATIENT
  Age: 75 Year
  Sex: Female
  Weight: 70 kg

DRUGS (11)
  1. KLARICID [Suspect]
     Indication: RESPIRATORY TRACT INFECTION
     Route: 048
     Dates: start: 20100903, end: 20100905
  2. CLARITHROMYCIN [Suspect]
     Indication: RESPIRATORY TRACT INFECTION
     Dates: start: 20100906, end: 20100909
  3. DIGOXIN [Concomitant]
     Indication: ATRIAL FIBRILLATION
     Dosage: ONCE DAILY EXCEPT SATURDAY AND SUNDAY
     Route: 048
  4. LIPITOR [Concomitant]
     Indication: HYPERLIPIDAEMIA
     Dosage: ONCE DAILY
     Route: 048
  5. MEMODRIN [Concomitant]
     Indication: PSYCHOTIC DISORDER
     Route: 048
  6. RESOFERON [Concomitant]
     Indication: IRON DEFICIENCY ANAEMIA
     Route: 048
  7. FILICINE [Concomitant]
     Indication: IRON DEFICIENCY ANAEMIA
     Dosage: ONCE DAILY
     Route: 048
  8. SINTROM [Concomitant]
     Indication: ATRIAL FIBRILLATION
     Dosage: ONCE DAILY
     Route: 048
  9. ATARAX [Concomitant]
     Indication: PSYCHOTIC DISORDER
     Dosage: 1/2 TAB AT NOON; 1 TAB AT EVENING
     Route: 048
  10. SEROQUEL [Concomitant]
     Indication: PSYCHOTIC DISORDER
     Route: 048
  11. EVATON SIR [Concomitant]
     Indication: VITAMIN SUPPLEMENTATION
     Dosage: ONCE DAILY
     Route: 048

REACTIONS (3)
  - DEMENTIA [None]
  - PSYCHOTIC DISORDER [None]
  - RENAL FAILURE ACUTE [None]
